FAERS Safety Report 11489926 (Version 1)
Quarter: 2015Q3

REPORT INFORMATION
  Report Type: Spontaneous
  Country: US (occurrence: None)
  Receive Date: 20150909
  Receipt Date: 20150909
  Transmission Date: 20151125
  Serious: No
  Sender: FDA-Public Use
  Company Number: US-MDT-ADR-2015-01740

PATIENT
  Age: 37 Year
  Sex: Female

DRUGS (1)
  1. BACLOFEN INTRATHECAL UNK [Suspect]
     Active Substance: BACLOFEN
     Dosage: UNK

REACTIONS (1)
  - Exposure during pregnancy [None]
